FAERS Safety Report 9790084 (Version 1)
Quarter: 2013Q4

REPORT INFORMATION
  Report Type: Spontaneous
  Country: US (occurrence: None)
  Receive Date: 20131230
  Receipt Date: 20131230
  Transmission Date: 20140711
  Serious: No
  Sender: FDA-Public Use
  Company Number: None

PATIENT
  Sex: Female
  Weight: 45.36 kg

DRUGS (1)
  1. OPANA ER [Suspect]
     Indication: PAIN
     Dosage: ABT 2010 ORIGINALLY
     Route: 048
     Dates: start: 2010

REACTIONS (2)
  - Drug ineffective [None]
  - Product substitution issue [None]
